FAERS Safety Report 8847887 (Version 1)
Quarter: 2012Q4

REPORT INFORMATION
  Report Type: Report from Study
  Country: AT (occurrence: AT)
  Receive Date: 20121018
  Receipt Date: 20121018
  Transmission Date: 20130627
  Serious: Yes (Hospitalization)
  Sender: FDA-Public Use
  Company Number: AT-ROCHE-1145359

PATIENT
  Age: 41 Year
  Sex: Male
  Weight: 83 kg

DRUGS (5)
  1. PEG-INTERFERON ALFA 2A [Suspect]
     Indication: HEPATITIS C
     Dosage: Last dose prior to SAE 16/Jul/2012
     Route: 058
     Dates: start: 20120605, end: 20120731
  2. RIBAVIRIN [Suspect]
     Indication: HEPATITIS C
     Dosage: Last dose prior to SAE 16/Jul/2012
     Route: 048
     Dates: start: 20120605, end: 20120731
  3. KLACID UNO [Concomitant]
     Route: 065
     Dates: start: 20120803, end: 20120811
  4. PANTOLOC [Concomitant]
     Route: 065
     Dates: start: 20120803
  5. NEUROBION FORTE [Concomitant]
     Route: 065
     Dates: start: 20120803

REACTIONS (1)
  - Drug dependence [Recovering/Resolving]
